FAERS Safety Report 5330322-1 (Version None)
Quarter: 2007Q2

REPORT INFORMATION
  Report Type: 
  Country: None (occurrence: None)
  Receive Date: 20070521
  Receipt Date: 20070501
  Transmission Date: 20071010
  Serious: Yes (Hospitalization)
  Sender: FDA-Public Use
  Company Number: JP-PFIZER INC-2007036606

PATIENT
  Sex: Male

DRUGS (10)
  1. MIGLITOL TABLET [Suspect]
     Indication: DIABETES MELLITUS
     Dosage: DAILY DOSE:150MG
     Route: 048
     Dates: start: 20070317, end: 20070413
  2. AMARYL [Concomitant]
     Dosage: DAILY DOSE:1MG
     Route: 048
  3. KINEDAK [Concomitant]
     Dosage: DAILY DOSE:150MG
     Route: 048
     Dates: start: 20070105
  4. ALL OTHER THERAPEUTIC PRODUCTS [Concomitant]
     Indication: RENAL FAILURE CHRONIC
     Dosage: DAILY DOSE:6GRAM
     Route: 048
     Dates: start: 20070324
  5. CONIEL [Concomitant]
     Dosage: DAILY DOSE:8MG
     Route: 048
     Dates: start: 20070105
  6. PLAVIX [Concomitant]
     Indication: REVERSIBLE ISCHAEMIC NEUROLOGICAL DEFICIT
     Dosage: DAILY DOSE:50MG
     Route: 048
     Dates: start: 20070105
  7. BEZATOL - SLOW RELEASE [Concomitant]
     Indication: HYPERLIPIDAEMIA
     Dosage: DAILY DOSE:400MG
     Route: 048
     Dates: start: 20070105
  8. JUVELA NICOTINATE [Concomitant]
     Dosage: DAILY DOSE:600MG
     Route: 048
  9. MYONAL [Concomitant]
     Dosage: DAILY DOSE:150MG
     Route: 048
     Dates: start: 20070105
  10. VALSARTAN [Concomitant]
     Indication: HYPERTENSION
     Dosage: DAILY DOSE:160MG
     Route: 048
     Dates: start: 20070105

REACTIONS (5)
  - CEREBRAL INFARCTION [None]
  - DEHYDRATION [None]
  - DIARRHOEA [None]
  - DYSLALIA [None]
  - HYPOAESTHESIA FACIAL [None]
